FAERS Safety Report 20350512 (Version 1)
Quarter: 2022Q1

REPORT INFORMATION
  Report Type: Spontaneous
  Country: US (occurrence: US)
  Receive Date: 20220119
  Receipt Date: 20220119
  Transmission Date: 20220423
  Serious: Yes (Hospitalization, Other)
  Sender: FDA-Public Use
  Company Number: US-AMGEN-USASP2022004478

PATIENT
  Age: 28 Year
  Sex: Female

DRUGS (7)
  1. ROMIPLOSTIM [Suspect]
     Active Substance: ROMIPLOSTIM
     Indication: Immune thrombocytopenia
     Dosage: UNK
     Route: 065
  2. RITUXIMAB [Suspect]
     Active Substance: RITUXIMAB
     Indication: Immune thrombocytopenia
     Dosage: UNK, QMO
     Route: 065
  3. ENOXAPARIN [Concomitant]
     Active Substance: ENOXAPARIN
  4. HUMAN IMMUNOGLOBULIN G [Concomitant]
     Active Substance: HUMAN IMMUNOGLOBULIN G
     Dosage: UNK
  5. ARGATROBAN [Concomitant]
     Active Substance: ARGATROBAN
  6. WARFARIN [Concomitant]
     Active Substance: WARFARIN
  7. METHYLPREDNISOLONE [Concomitant]
     Active Substance: METHYLPREDNISOLONE
     Dosage: 1250 MILLIGRAM

REACTIONS (5)
  - Cerebral venous sinus thrombosis [Unknown]
  - Pelvic venous thrombosis [Unknown]
  - Pulmonary embolism [Unknown]
  - Off label use [Unknown]
  - Drug ineffective for unapproved indication [Unknown]
